FAERS Safety Report 7204268-8 (Version None)
Quarter: 2010Q4

REPORT INFORMATION
  Report Type: 
  Country: None (occurrence: None)
  Receive Date: 20101230
  Receipt Date: 20101222
  Transmission Date: 20110411
  Serious: Yes (Other)
  Sender: FDA-Public Use
  Company Number: GB-ALLERGAN-1016650US

PATIENT
  Age: 48 Year
  Sex: Male
  Weight: 79.38 kg

DRUGS (2)
  1. COMBIGAN [Suspect]
     Indication: OCULAR HYPERTENSION
     Dosage: 1 DF, BID
     Route: 047
     Dates: start: 20101125, end: 20101125
  2. LUMIGAN [Suspect]
     Indication: OCULAR HYPERTENSION
     Dosage: 1 DF, BID
     Route: 047
     Dates: start: 20101125, end: 20101125

REACTIONS (8)
  - DRY SKIN [None]
  - ERYTHEMA [None]
  - EYELID OEDEMA [None]
  - PRURITUS [None]
  - PRURITUS GENITAL [None]
  - SKIN EXFOLIATION [None]
  - SKIN TIGHTNESS [None]
  - SKIN WARM [None]
